FAERS Safety Report 14750521 (Version 1)
Quarter: 2018Q2

REPORT INFORMATION
  Report Type: Spontaneous
  Country: US (occurrence: US)
  Receive Date: 20180412
  Receipt Date: 20180412
  Transmission Date: 20180711
  Serious: No
  Sender: FDA-Public Use
  Company Number: US-009507513-1803USA012036

PATIENT
  Age: 25 Year
  Sex: Female
  Weight: 61.2 kg

DRUGS (2)
  1. NEXPLANON [Suspect]
     Active Substance: ETONOGESTREL
     Indication: CONTRACEPTION
     Dosage: INSERTED IN THE LEFT ARM, 1 IMPLANT EVERY 3 YEARS
     Route: 059
     Dates: start: 20170821
  2. IBUPROFEN. [Concomitant]
     Active Substance: IBUPROFEN

REACTIONS (4)
  - Amenorrhoea [Recovered/Resolved]
  - Abdominal pain lower [Unknown]
  - Nipple pain [Unknown]
  - Breast pain [Unknown]

NARRATIVE: CASE EVENT DATE: 20170821
